FAERS Safety Report 6653249-1 (Version None)
Quarter: 2010Q1

REPORT INFORMATION
  Report Type: 
  Country: None (occurrence: None)
  Receive Date: 20100326
  Receipt Date: 20100322
  Transmission Date: 20100710
  Serious: Yes (Other)
  Sender: FDA-Public Use
  Company Number: CL-BRISTOL-MYERS SQUIBB COMPANY-15028889

PATIENT
  Age: 25 Year
  Sex: Male

DRUGS (3)
  1. REYATAZ [Suspect]
     Dosage: INTERRUPTED ON 22-MAR-10
     Route: 048
     Dates: start: 20100101
  2. RITONAVIR [Suspect]
     Route: 048
  3. COMBIVIR [Suspect]
     Dosage: 1 DF=ZIDOVUDINE 300 MG+LAMIVUDINE 150 MG
     Route: 048

REACTIONS (5)
  - ABDOMINAL PAIN [None]
  - HEADACHE [None]
  - HYPERBILIRUBINAEMIA [None]
  - NAUSEA [None]
  - TRANSAMINASES INCREASED [None]
